FAERS Safety Report 12945203 (Version 1)
Quarter: 2016Q4

REPORT INFORMATION
  Report Type: Spontaneous
  Country: US (occurrence: US)
  Receive Date: 20161116
  Receipt Date: 20161116
  Transmission Date: 20170207
  Serious: No
  Sender: FDA-Public Use
  Company Number: US-JNJFOC-20161026818

PATIENT
  Sex: Female

DRUGS (10)
  1. VITAMIN E [Concomitant]
     Active Substance: .ALPHA.-TOCOPHEROL
     Indication: ROUTINE HEALTH MAINTENANCE
     Route: 065
  2. BIOTIN [Concomitant]
     Active Substance: BIOTIN
     Indication: NAIL DISORDER
     Route: 065
  3. WOMENS ROGAINE UNSCENTED [Suspect]
     Active Substance: MINOXIDIL
     Route: 061
  4. WOMENS ROGAINE UNSCENTED [Suspect]
     Active Substance: MINOXIDIL
     Indication: ALOPECIA
     Dosage: 1 CAP FULL, 1X DAILY
     Route: 061
  5. GINKO BILOBA [Concomitant]
     Active Substance: GINKGO
     Indication: CEREBRAL DISORDER
     Route: 065
  6. BIOTIN [Concomitant]
     Active Substance: BIOTIN
     Indication: SKIN DISORDER
     Route: 065
  7. BIOTIN [Concomitant]
     Active Substance: BIOTIN
     Indication: HAIR DISORDER
     Route: 065
  8. IRON W/VITAMINS NOS [Concomitant]
     Active Substance: IRON\VITAMINS
     Indication: ROUTINE HEALTH MAINTENANCE
     Route: 065
  9. CALCIUM [Concomitant]
     Active Substance: CALCIUM
     Indication: BONE DISORDER
     Route: 065
  10. MINI FISH OIL [Concomitant]
     Indication: CARDIAC DISORDER
     Route: 065

REACTIONS (3)
  - Expired product administered [Unknown]
  - Overdose [Unknown]
  - Product quality issue [Unknown]
